FAERS Safety Report 8367010-3 (Version None)
Quarter: 2012Q2

REPORT INFORMATION
  Report Type: 
  Country: None (occurrence: None)
  Receive Date: 20120515
  Receipt Date: 20120515
  Transmission Date: 20120825
  Serious: Yes (Death)
  Sender: FDA-Public Use
  Company Number: None

PATIENT
  Age: 41 Year
  Sex: Male

DRUGS (10)
  1. DRONABINOL [Concomitant]
  2. ALPRAZOLAM [Concomitant]
  3. DROPERIDOL [Concomitant]
  4. LANSOPRAZOLE [Concomitant]
  5. PALONOSETRON [Concomitant]
  6. GEMCITABINE [Suspect]
     Dates: start: 20101202, end: 20110201
  7. METOCLOPRAMIDE [Concomitant]
  8. CISPLATIN [Suspect]
     Dates: start: 20101202, end: 20110201
  9. DEXAMETHASONE [Concomitant]
  10. OXYCODONE HCL [Concomitant]

REACTIONS (4)
  - HEPATIC FAILURE [None]
  - BILE DUCT STENOSIS [None]
  - CHOLANGITIS SCLEROSING [None]
  - LIVER INJURY [None]
